FAERS Safety Report 18672175 (Version 9)
Quarter: 2021Q3

REPORT INFORMATION
  Report Type: Report from Study
  Country: CN (occurrence: CN)
  Receive Date: 20201229
  Receipt Date: 20210917
  Transmission Date: 20211014
  Serious: Yes (Hospitalization)
  Sender: FDA-Public Use
  Company Number: CN-ROCHE-2730307

PATIENT
  Age: 63 Year
  Sex: Male
  Weight: 68 kg

DRUGS (56)
  1. CARBOPLATIN. [Suspect]
     Active Substance: CARBOPLATIN
     Indication: NON-SMALL CELL LUNG CANCER STAGE IV
     Dosage: MOST RECENT DOSE (790 MG) OF CARBOPLATIN PRIOR TO ADVERSE EVENT 18/NOV/2020 ?AUC OF 6 MG/ML/MIN
     Route: 042
     Dates: start: 20201118
  2. OMEPRAZOLE SODIUM [Concomitant]
     Active Substance: OMEPRAZOLE SODIUM
     Dates: start: 20201218, end: 20201218
  3. FUROSEMIDE. [Concomitant]
     Active Substance: FUROSEMIDE
     Indication: POLYURIA
     Dates: start: 20201118, end: 20201118
  4. FOSAPREPITANT DIMEGLUMINE. [Concomitant]
     Active Substance: FOSAPREPITANT DIMEGLUMINE
     Indication: NAUSEA
     Dates: start: 20201118, end: 20201118
  5. BUDESONIDE;FORMOTEROL FUMARATE [Concomitant]
     Active Substance: BUDESONIDE\FORMOTEROL FUMARATE
     Route: 055
     Dates: start: 20201127, end: 20201207
  6. CALCIUM CARBONATE;VITAMIN D3 [Concomitant]
     Dates: start: 20201210, end: 20201215
  7. METOCLOPRAMIDE DIHYDROCHLORIDE [Concomitant]
     Dates: start: 20210129, end: 20210129
  8. GALCULUS BOVIS AND METRONIDAZOLE [Concomitant]
     Active Substance: BOS TAURUS GALLSTONE\METRONIDAZOLE
     Indication: GINGIVAL PAIN
     Dates: start: 202101
  9. BEVACIZUMAB. [Suspect]
     Active Substance: BEVACIZUMAB
     Indication: NON-SMALL CELL LUNG CANCER STAGE IV
     Dosage: START DATE OF MOST RECENT DOSE (1030 MG) OF STUDY DRUG PRIOR TO AE/SAE: 18/NOV/2020
     Route: 042
     Dates: start: 20201118
  10. PALONOSETRON HYDROCHLORIDE. [Concomitant]
     Active Substance: PALONOSETRON HYDROCHLORIDE
     Dates: start: 20210107, end: 20210107
  11. METOCLOPRAMIDE. [Concomitant]
     Active Substance: METOCLOPRAMIDE
     Indication: NAUSEA
     Dates: start: 20201118, end: 20201120
  12. PEMETREXED. [Suspect]
     Active Substance: PEMETREXED
     Indication: NON-SMALL CELL LUNG CANCER STAGE IV
     Dosage: DATE OF MOST RECENT DOSE (895 MG) OF STUDY DRUG PRIOR TO ADVERSE EVENT 18/NOV/2020
     Route: 042
     Dates: start: 20201118
  13. PANTOPRAZOLE SODIUM. [Concomitant]
     Active Substance: PANTOPRAZOLE SODIUM
     Dates: start: 20210109, end: 20210116
  14. ONDANSETRON HYDROCHLORIDE. [Concomitant]
     Active Substance: ONDANSETRON HYDROCHLORIDE
     Indication: NAUSEA
     Dates: start: 20201118, end: 20201120
  15. TAMSULOSIN HYDROCHLORIDE. [Concomitant]
     Active Substance: TAMSULOSIN HYDROCHLORIDE
     Dates: start: 20201215
  16. DIPHENHYDRAMINE HYDROCHLORIDE. [Concomitant]
     Active Substance: DIPHENHYDRAMINE HYDROCHLORIDE
     Dates: start: 20210107, end: 20210107
  17. DIPHENHYDRAMINE HYDROCHLORIDE. [Concomitant]
     Active Substance: DIPHENHYDRAMINE HYDROCHLORIDE
     Dates: start: 20210129, end: 20210129
  18. FOLIC ACID. [Concomitant]
     Active Substance: FOLIC ACID
     Dates: start: 20201028
  19. OMEPRAZOLE SODIUM [Concomitant]
     Active Substance: OMEPRAZOLE SODIUM
     Dates: start: 20210129, end: 20210129
  20. METOCLOPRAMIDE HYDROCHLORIDE. [Concomitant]
     Active Substance: METOCLOPRAMIDE HYDROCHLORIDE
     Dates: start: 20201118, end: 20201118
  21. METOCLOPRAMIDE. [Concomitant]
     Active Substance: METOCLOPRAMIDE
     Dates: start: 20201220, end: 20201220
  22. DEXAMETHASONE ACETATE [Concomitant]
     Active Substance: DEXAMETHASONE ACETATE
     Route: 048
     Dates: start: 20201217, end: 20201219
  23. DEXAMETHASONE ACETATE [Concomitant]
     Active Substance: DEXAMETHASONE ACETATE
     Route: 048
     Dates: start: 20210128, end: 20210130
  24. OMEPRAZOLE SODIUM [Concomitant]
     Active Substance: OMEPRAZOLE SODIUM
     Dates: start: 20201118, end: 20201118
  25. FUROSEMIDE. [Concomitant]
     Active Substance: FUROSEMIDE
     Dates: start: 20210128, end: 20210128
  26. METOCLOPRAMIDE. [Concomitant]
     Active Substance: METOCLOPRAMIDE
     Dates: start: 20210130, end: 20210204
  27. PANTOPRAZOLE SODIUM. [Concomitant]
     Active Substance: PANTOPRAZOLE SODIUM
     Indication: NAUSEA
     Dates: start: 20201118, end: 20201120
  28. DIPHENHYDRAMINE HYDROCHLORIDE. [Concomitant]
     Active Substance: DIPHENHYDRAMINE HYDROCHLORIDE
     Indication: HYPERSENSITIVITY
     Dates: start: 20201218, end: 20201218
  29. SODIUM IBANDRONATE [Concomitant]
     Active Substance: IBANDRONATE SODIUM
     Dates: start: 20210107, end: 20210107
  30. DEXAMETHASONE ACETATE [Concomitant]
     Active Substance: DEXAMETHASONE ACETATE
     Route: 048
     Dates: start: 20201117, end: 20201119
  31. DEXAMETHASONE ACETATE [Concomitant]
     Active Substance: DEXAMETHASONE ACETATE
     Route: 048
     Dates: start: 20210106, end: 20210106
  32. PALONOSETRON HYDROCHLORIDE. [Concomitant]
     Active Substance: PALONOSETRON HYDROCHLORIDE
     Dates: start: 20210129, end: 20210129
  33. FOSAPREPITANT DIMEGLUMINE. [Concomitant]
     Active Substance: FOSAPREPITANT DIMEGLUMINE
     Dates: start: 20210129, end: 20210129
  34. PANTOPRAZOLE SODIUM. [Concomitant]
     Active Substance: PANTOPRAZOLE SODIUM
     Dates: start: 20210130, end: 20210204
  35. BICYCLOL [Concomitant]
     Active Substance: BICYCLOL
     Dates: start: 20201210, end: 20201230
  36. PALONOSETRON. [Concomitant]
     Active Substance: PALONOSETRON HYDROCHLORIDE
     Dates: start: 20210130, end: 20210201
  37. ATEZOLIZUMAB. [Suspect]
     Active Substance: ATEZOLIZUMAB
     Indication: NON-SMALL CELL LUNG CANCER STAGE IV
     Dosage: DATE OF MOST RECENT DOSE OF STUDY DRUG PRIOR TO AE/SAE: 18/NOV/2020?ON DAY 1 OF EACH 21?DAY CYCLE
     Route: 041
     Dates: start: 20201118
  38. OMEPRAZOLE SODIUM [Concomitant]
     Active Substance: OMEPRAZOLE SODIUM
     Dates: start: 20210107, end: 20210107
  39. FUROSEMIDE. [Concomitant]
     Active Substance: FUROSEMIDE
     Dates: start: 20210107, end: 20210107
  40. MAGNESIUM ISOGLYCYRRHIZINATE [Concomitant]
     Active Substance: MAGNESIUM ISOGLYCYRRHIZINATE
     Dates: start: 20201215, end: 20201218
  41. METOCLOPRAMIDE. [Concomitant]
     Active Substance: METOCLOPRAMIDE
     Dates: start: 20210109, end: 20210116
  42. FINASTERIDE. [Concomitant]
     Active Substance: FINASTERIDE
     Dates: start: 20201215
  43. METOCLOPRAMIDE DIHYDROCHLORIDE [Concomitant]
     Indication: VOMITING
     Dates: start: 20201218, end: 20201218
  44. METOCLOPRAMIDE DIHYDROCHLORIDE [Concomitant]
     Dates: start: 20210107, end: 20210107
  45. PALONOSETRON. [Concomitant]
     Active Substance: PALONOSETRON HYDROCHLORIDE
     Indication: NAUSEA
     Dates: start: 20201120, end: 20201222
  46. PALONOSETRON. [Concomitant]
     Active Substance: PALONOSETRON HYDROCHLORIDE
     Dates: start: 20210109, end: 20210111
  47. RECOMBINANT HUMAN GRANULOCYTE COLONY STIMULATING FACTOR (UNK INGREDIEN [Concomitant]
     Indication: WHITE BLOOD CELL COUNT DECREASED
     Dates: start: 20210119, end: 20210121
  48. RECOMBINANT HUMAN GRANULOCYTE COLONY STIMULATING FACTOR (UNK INGREDIEN [Concomitant]
     Indication: NEUTROPHIL COUNT DECREASED
  49. WARFARIN SODIUM. [Concomitant]
     Active Substance: WARFARIN SODIUM
     Indication: VENOUS THROMBOSIS
     Dates: start: 20201027, end: 20201208
  50. PALONOSETRON HYDROCHLORIDE. [Concomitant]
     Active Substance: PALONOSETRON HYDROCHLORIDE
     Indication: VOMITING
     Dates: start: 20201118, end: 20201118
  51. PALONOSETRON HYDROCHLORIDE. [Concomitant]
     Active Substance: PALONOSETRON HYDROCHLORIDE
     Dates: start: 20201218, end: 20201218
  52. FOSAPREPITANT DIMEGLUMINE. [Concomitant]
     Active Substance: FOSAPREPITANT DIMEGLUMINE
     Indication: VOMITING
     Dates: start: 20201218, end: 20201218
  53. FOSAPREPITANT DIMEGLUMINE. [Concomitant]
     Active Substance: FOSAPREPITANT DIMEGLUMINE
     Dates: start: 20210107, end: 20210107
  54. PANTOPRAZOLE SODIUM. [Concomitant]
     Active Substance: PANTOPRAZOLE SODIUM
     Dates: start: 20201220, end: 20201226
  55. SODIUM IBANDRONATE [Concomitant]
     Active Substance: IBANDRONATE SODIUM
     Dates: start: 20201218, end: 20201218
  56. RECOMBINANT HUMAN INTERLEUKIN?11 [Concomitant]
     Active Substance: OPRELVEKIN
     Indication: PLATELET COUNT DECREASED
     Dates: start: 20210119, end: 20210124

REACTIONS (2)
  - Pulmonary embolism [Recovered/Resolved]
  - Aspartate aminotransferase increased [Recovered/Resolved]

NARRATIVE: CASE EVENT DATE: 20201205
